FAERS Safety Report 11780759 (Version 1)
Quarter: 2015Q4

REPORT INFORMATION
  Report Type: Spontaneous
  Country: DK (occurrence: DK)
  Receive Date: 20151126
  Receipt Date: 20151126
  Transmission Date: 20160305
  Serious: Yes (Other)
  Sender: FDA-Public Use
  Company Number: DK-ROCHE-1659065

PATIENT
  Age: 27 Year
  Sex: Female

DRUGS (2)
  1. OSELTAMIVIR [Suspect]
     Active Substance: OSELTAMIVIR
     Indication: H1N1 INFLUENZA
     Route: 048
  2. CEFUROXIME. [Suspect]
     Active Substance: CEFUROXIME
     Indication: H1N1 INFLUENZA
     Route: 065

REACTIONS (6)
  - Premature delivery [Unknown]
  - Umbilical cord vascular disorder [Unknown]
  - Protein C deficiency [Unknown]
  - Protein S deficiency [Unknown]
  - Maternal exposure during pregnancy [Unknown]
  - Deep vein thrombosis [Unknown]
